FAERS Safety Report 23483207 (Version 1)
Quarter: 2024Q1

REPORT INFORMATION
  Report Type: Spontaneous
  Country: DE (occurrence: DE)
  Receive Date: 20240205
  Receipt Date: 20240205
  Transmission Date: 20240410
  Serious: Yes (Hospitalization)
  Sender: FDA-Public Use
  Company Number: DE-JNJFOC-20230149070

PATIENT
  Age: 5 Decade
  Sex: Male

DRUGS (9)
  1. METHOTREXATE [Suspect]
     Active Substance: METHOTREXATE
     Dosage: 10.000MG
     Route: 065
     Dates: start: 20131114
  2. METHOTREXATE [Suspect]
     Active Substance: METHOTREXATE
     Dosage: 10.000MG
     Route: 065
     Dates: start: 20171106
  3. METHOTREXATE [Suspect]
     Active Substance: METHOTREXATE
     Dosage: 12.500MG
     Route: 065
     Dates: start: 20130729
  4. METHOTREXATE [Suspect]
     Active Substance: METHOTREXATE
     Dosage: 12.500MG
     Route: 065
     Dates: start: 20151208
  5. METHOTREXATE [Suspect]
     Active Substance: METHOTREXATE
     Dosage: 15.000MG
     Route: 065
     Dates: start: 20170531
  6. METHOTREXATE [Suspect]
     Active Substance: METHOTREXATE
     Dosage: 15.000MG
     Route: 065
     Dates: start: 201305
  7. METHOTREXATE [Suspect]
     Active Substance: METHOTREXATE
     Indication: Product used for unknown indication
     Dosage: 7.500MG
     Route: 065
     Dates: start: 20160426
  8. METHOTREXATE [Suspect]
     Active Substance: METHOTREXATE
     Dosage: 7.500MG
     Route: 065
     Dates: start: 20201217
  9. SIMPONI [Suspect]
     Active Substance: GOLIMUMAB
     Indication: Rheumatoid arthritis
     Dosage: 50.000MG
     Route: 058
     Dates: start: 201305

REACTIONS (2)
  - Foot deformity [Recovered/Resolved]
  - Sinusitis [Recovered/Resolved]

NARRATIVE: CASE EVENT DATE: 20220217
